FAERS Safety Report 25274181 (Version 1)
Quarter: 2025Q2

REPORT INFORMATION
  Report Type: Report from Study
  Country: US (occurrence: US)
  Receive Date: 20250506
  Receipt Date: 20250506
  Transmission Date: 20250716
  Serious: Yes (Other)
  Sender: TAKEDA
  Company Number: US-TAKEDA-2025TUS041902

PATIENT
  Sex: Female

DRUGS (1)
  1. VEDOLIZUMAB [Suspect]
     Active Substance: VEDOLIZUMAB
     Indication: Colitis
     Dosage: 300 MILLIGRAM, Q4WEEKS

REACTIONS (6)
  - Rectal haemorrhage [Recovered/Resolved]
  - Infrequent bowel movements [Unknown]
  - Faeces hard [Unknown]
  - Diarrhoea [Unknown]
  - Defaecation urgency [Unknown]
  - Liver function test increased [Unknown]
